FAERS Safety Report 6154078-8 (Version None)
Quarter: 2009Q2

REPORT INFORMATION
  Report Type: 
  Country: None (occurrence: None)
  Receive Date: 20090414
  Receipt Date: 20090403
  Transmission Date: 20091009
  Serious: Yes (Hospitalization)
  Sender: FDA-Public Use
  Company Number: US-ROCHE-626524

PATIENT
  Sex: Male
  Weight: 94.7 kg

DRUGS (8)
  1. PEG-INTERFERON ALFA 2A (RO 25-8310) [Suspect]
     Dosage: DOSE:180UG/ML
     Route: 058
     Dates: start: 20090210, end: 20090329
  2. RIBAVIRIN [Suspect]
     Route: 048
     Dates: start: 20090210, end: 20090329
  3. EFFEXOR [Concomitant]
     Indication: DEPRESSION
     Dosage: STRENGTH:75MG
     Route: 048
     Dates: start: 20060101
  4. AMITRIPTLINE HYDROCHLORIDE TAB [Concomitant]
     Indication: DEPRESSION
     Dosage: STRENGTH:50MG
     Route: 048
     Dates: start: 20060101
  5. LISINOPRIL [Concomitant]
     Indication: HYPERTENSION
     Dosage: STRENGTH:20MG
     Route: 048
     Dates: start: 20070101
  6. OMEPRAZOLE [Concomitant]
     Dosage: TDD:40MG
     Route: 048
     Dates: start: 20070101
  7. VICODIN [Concomitant]
     Dosage: TDD:10/1000,STRENGTH:5/500
     Route: 048
     Dates: start: 20090217
  8. IBUPROFEN [Concomitant]
     Dosage: STRENGTH:400MG
     Route: 048
     Dates: start: 20090213

REACTIONS (1)
  - SYNCOPE [None]
